FAERS Safety Report 10192399 (Version 3)
Quarter: 2014Q2

REPORT INFORMATION
  Report Type: Spontaneous
  Country: US (occurrence: US)
  Receive Date: 20140523
  Receipt Date: 20140619
  Transmission Date: 20141212
  Serious: No
  Sender: FDA-Public Use
  Company Number: US-PFIZER INC-2014139241

PATIENT
  Age: 70 Year
  Sex: Female
  Weight: 88.9 kg

DRUGS (10)
  1. BOSULIF [Suspect]
     Indication: CHRONIC LEUKAEMIA
     Dosage: 500 MG, DAILY
     Dates: end: 2014
  2. BOSULIF [Suspect]
     Indication: CHRONIC LEUKAEMIA
     Dosage: 500 MG, DAILY
     Dates: start: 2014
  3. GLEEVEC [Suspect]
     Dosage: UNK
     Dates: start: 20121120
  4. METOPROLOL [Concomitant]
     Dosage: UNK
  5. SERTRALINE [Concomitant]
     Dosage: UNK
  6. POTASSIUM [Concomitant]
     Dosage: UNK
  7. LEVOTHYROXINE [Concomitant]
     Dosage: UNK
  8. FUROSEMIDE [Concomitant]
     Dosage: UNK
  9. DEXILANT [Concomitant]
     Dosage: UNK
  10. ASPIRIN [Concomitant]
     Dosage: 81 MG, UNK

REACTIONS (2)
  - Cough [Unknown]
  - Laboratory test abnormal [Unknown]
